FAERS Safety Report 6576711-9 (Version None)
Quarter: 2010Q1

REPORT INFORMATION
  Report Type: 
  Country: None (occurrence: None)
  Receive Date: 20100210
  Receipt Date: 20100201
  Transmission Date: 20100710
  Serious: Yes (Hospitalization, Other)
  Sender: FDA-Public Use
  Company Number: US-PFIZER INC-2009302056

PATIENT
  Sex: Male
  Weight: 88.435 kg

DRUGS (6)
  1. SUTENT [Suspect]
     Indication: RENAL CELL CARCINOMA
     Dosage: 50 MG, 1X/DAY, CYCLE 4/2
     Route: 048
     Dates: start: 20070715, end: 20090101
  2. GALANTAMINE HYDROBROMIDE [Suspect]
     Indication: MEMORY IMPAIRMENT
     Dosage: UNK
     Dates: start: 20090101, end: 20090101
  3. METOPROLOL TARTRATE [Concomitant]
     Indication: CARDIAC FAILURE CONGESTIVE
     Dosage: 12.5 MG, 2X/DAY
     Route: 048
  4. METOPROLOL TARTRATE [Concomitant]
     Indication: ATRIAL FIBRILLATION
  5. CUMADIN [Concomitant]
     Indication: CARDIAC FAILURE CONGESTIVE
     Dosage: 1.25 MG, 1X/DAY
     Route: 048
  6. CUMADIN [Concomitant]
     Indication: ATRIAL FIBRILLATION

REACTIONS (3)
  - DIARRHOEA [None]
  - EXCORIATION [None]
  - IMPAIRED HEALING [None]
